FAERS Safety Report 12739021 (Version 8)
Quarter: 2021Q2

REPORT INFORMATION
  Report Type: Spontaneous
  Country: US (occurrence: US)
  Receive Date: 20160912
  Receipt Date: 20210607
  Transmission Date: 20210716
  Serious: No
  Sender: FDA-Public Use
  Company Number: US-PFIZER INC-2016021779

PATIENT
  Age: 69 Year
  Sex: Female
  Weight: 59 kg

DRUGS (12)
  1. EFFEXOR XR [Suspect]
     Active Substance: VENLAFAXINE HYDROCHLORIDE
     Dosage: 150 MG, DAILY (75 MG, 2 CAPSULES A DAY)
     Route: 048
  2. PROAIR HFA [Concomitant]
     Active Substance: ALBUTEROL SULFATE
     Dosage: UNK
  3. TRAZODONE [Concomitant]
     Active Substance: TRAZODONE HYDROCHLORIDE
     Indication: SLEEP DISORDER
     Dosage: 100 MG, DAILY (AT NIGHT)
  4. DICLOFENAC SODIUM ER [Concomitant]
     Active Substance: DICLOFENAC SODIUM
     Indication: ARTHRITIS
     Dosage: 100 MG, DAILY
     Route: 048
  5. EFFEXOR XR [Suspect]
     Active Substance: VENLAFAXINE HYDROCHLORIDE
     Indication: GENERALISED ANXIETY DISORDER
     Dosage: 600 MG, DAILY (300 MG, 2 CAPSULES, AT NIGHT)
  6. EFFEXOR XR [Suspect]
     Active Substance: VENLAFAXINE HYDROCHLORIDE
     Dosage: 225 MG, DAILY (75 MG; 3 CAPSULES A DAY)
  7. TYLENOL ARTHRITIS PAIN [Concomitant]
     Active Substance: ACETAMINOPHEN
     Indication: ARTHRITIS
     Dosage: 650 MG, DAILY
  8. VITAMIN B12 [Concomitant]
     Active Substance: CYANOCOBALAMIN
     Dosage: 5000 UG, DAILY
  9. EFFEXOR XR [Suspect]
     Active Substance: VENLAFAXINE HYDROCHLORIDE
     Indication: MAJOR DEPRESSION
     Dosage: 300 MG, DAILY (150 MG 2 CAPS)
  10. EFFEXOR XR [Suspect]
     Active Substance: VENLAFAXINE HYDROCHLORIDE
     Indication: PANIC DISORDER
     Dosage: 300 MG, DAILY (150 MG 2 CAPSULES)
  11. VITAMIN D3 [Concomitant]
     Active Substance: CHOLECALCIFEROL
     Dosage: 4000 IU, DAILY
     Route: 048
  12. NICOTROL [Concomitant]
     Active Substance: NICOTINE
     Indication: SMOKING CESSATION THERAPY
     Dosage: UNK

REACTIONS (3)
  - Product dose omission issue [Unknown]
  - Prescribed overdose [Unknown]
  - Therapeutic product effect incomplete [Unknown]
